FAERS Safety Report 4642588-1 (Version None)
Quarter: 2005Q2

REPORT INFORMATION
  Report Type: 
  Country: None (occurrence: None)
  Receive Date: 20050420
  Receipt Date: 20050408
  Transmission Date: 20051028
  Serious: Yes (Life-Threatening)
  Sender: FDA-Public Use
  Company Number: 26480

PATIENT
  Age: 41 Year
  Sex: Male

DRUGS (1)
  1. FLECAINIDE ACETATE [Suspect]
     Dosage: 200 MG ORAL
     Route: 048
     Dates: start: 20050309, end: 20050316

REACTIONS (4)
  - CARDIAC FLUTTER [None]
  - CARDIOGENIC SHOCK [None]
  - HYPOTENSION [None]
  - VENTRICULAR TACHYCARDIA [None]
